FAERS Safety Report 5716176-X (Version None)
Quarter: 2008Q2

REPORT INFORMATION
  Report Type: 
  Country: None (occurrence: None)
  Receive Date: 20080424
  Receipt Date: 20080415
  Transmission Date: 20081010
  Serious: Yes (Other)
  Sender: FDA-Public Use
  Company Number: PHBS2008JP04102

PATIENT
  Age: 28 Year
  Sex: Female

DRUGS (2)
  1. METHERGINE [Suspect]
     Dosage: 0.2 MG
     Route: 042
  2. OXYTOCIN [Suspect]
     Dosage: 5 UNITS
     Route: 030

REACTIONS (4)
  - EJECTION FRACTION DECREASED [None]
  - PERIPARTUM CARDIOMYOPATHY [None]
  - PULMONARY OEDEMA [None]
  - VENTRICULAR HYPOKINESIA [None]
